FAERS Safety Report 7961454-7 (Version None)
Quarter: 2011Q4

REPORT INFORMATION
  Report Type: 
  Country: None (occurrence: None)
  Receive Date: 20111202
  Receipt Date: 20111117
  Transmission Date: 20120403
  Serious: Yes (Other)
  Sender: FDA-Public Use
  Company Number: 1000025756

PATIENT
  Age: 30 Year
  Sex: Male
  Weight: 57 kg

DRUGS (5)
  1. HALOPERIDOL [Concomitant]
  2. VALPROATE SODIUM [Suspect]
     Dosage: 2000 MG
     Dates: end: 20111028
  3. DEPAKOTE [Concomitant]
  4. CITALOPRAM HYDROBROMIDE [Suspect]
     Dosage: ORAL
     Route: 048
  5. CLOZARIL [Suspect]
     Indication: SCHIZOPHRENIA
     Dosage: 575 MG, ORAL
     Route: 048
     Dates: start: 20110329

REACTIONS (15)
  - AGGRESSION [None]
  - COGNITIVE DISORDER [None]
  - HAEMATEMESIS [None]
  - FATIGUE [None]
  - PSYCHOTIC DISORDER [None]
  - INAPPROPRIATE AFFECT [None]
  - GENDER IDENTITY DISORDER [None]
  - HEART RATE INCREASED [None]
  - SEDATION [None]
  - MENTAL DISORDER [None]
  - DELUSION OF GRANDEUR [None]
  - PERSECUTORY DELUSION [None]
  - GASTRITIS [None]
  - DELIRIUM [None]
  - CONVULSION [None]
